FAERS Safety Report 7786482-6 (Version None)
Quarter: 2011Q3

REPORT INFORMATION
  Report Type: 
  Country: None (occurrence: None)
  Receive Date: 20110929
  Receipt Date: 20110922
  Transmission Date: 20111222
  Serious: No
  Sender: FDA-Public Use
  Company Number: JP-PFIZER INC-2011206430

PATIENT
  Age: 96 Year
  Sex: Male

DRUGS (13)
  1. ATARAX [Suspect]
     Indication: PRURITUS GENERALISED
     Dosage: 25 MG, DAILY
     Dates: start: 20110601, end: 20110601
  2. ATARAX [Suspect]
     Dosage: 100 MG, DAILY
     Dates: start: 20110601
  3. SIGMART [Concomitant]
     Dosage: 15 MG DAILY
     Route: 048
  4. PRAVASTATIN SODIUM [Concomitant]
     Dosage: 5 MG DAILY
  5. MAGMITT [Concomitant]
     Dosage: 500 MG DAILY
     Route: 048
  6. OLOPATADINE HCL [Concomitant]
     Dosage: 10 MG DAILY
     Route: 048
  7. ATARAX [Suspect]
     Dosage: 75 MG, DAILY
     Dates: start: 20110701, end: 20110901
  8. LASIX [Concomitant]
     Dosage: 20 MG DAILY
  9. TENORMIN [Concomitant]
     Dosage: 25 MG DAILY
     Route: 048
  10. PREDNISOLONE [Concomitant]
     Dosage: 5 MG DAILY
  11. ALLOPURINOL [Concomitant]
     Dosage: 100 MG DAILY
  12. TALION [Concomitant]
     Dosage: 20 MG DAILY
     Route: 048
  13. LOSARTAN POTASSIUM [Concomitant]
     Dosage: 25 MG DAILY
     Route: 048

REACTIONS (1)
  - ERYTHEMA [None]
